FAERS Safety Report 5369112-2 (Version None)
Quarter: 2007Q2

REPORT INFORMATION
  Report Type: 
  Country: None (occurrence: None)
  Receive Date: 20070625
  Receipt Date: 20070212
  Transmission Date: 20071010
  Serious: No
  Sender: FDA-Public Use
  Company Number: US-ASTRAZENECA-2007UW02811

PATIENT
  Age: 53 Year
  Sex: Female
  Weight: 83.9 kg

DRUGS (6)
  1. CRESTOR [Suspect]
     Indication: BLOOD CHOLESTEROL INCREASED
     Route: 048
  2. CRESTOR [Suspect]
     Route: 048
  3. AVANDAMET [Concomitant]
  4. CELEBREX [Concomitant]
  5. PREMARIN [Concomitant]
  6. EYE DROPS [Concomitant]

REACTIONS (1)
  - TINNITUS [None]
